FAERS Safety Report 17563173 (Version 1)
Quarter: 2020Q1

REPORT INFORMATION
  Report Type: Spontaneous
  Country: US (occurrence: US)
  Receive Date: 20200312
  Receipt Date: 20200312
  Transmission Date: 20200409
  Serious: Yes (Hospitalization)
  Sender: FDA-Public Use
  Company Number: None

PATIENT
  Age: 70 Year
  Sex: Male
  Weight: 99 kg

DRUGS (1)
  1. IBRUTINIB [Suspect]
     Active Substance: IBRUTINIB
     Indication: ATRIAL FIBRILLATION
     Dosage: 420 MG AM PO
     Route: 048
     Dates: start: 20191030, end: 20191123

REACTIONS (3)
  - Palpitations [None]
  - Atrial fibrillation [None]
  - Tachycardia [None]

NARRATIVE: CASE EVENT DATE: 20191121
